FAERS Safety Report 21988850 (Version 1)
Quarter: 2023Q1

REPORT INFORMATION
  Report Type: Spontaneous
  Country: US (occurrence: US)
  Receive Date: 20230214
  Receipt Date: 20230214
  Transmission Date: 20230417
  Serious: Yes (Hospitalization)
  Sender: FDA-Public Use
  Company Number: US-STRIDES ARCOLAB LIMITED-2022SP005361

PATIENT
  Age: 2 Month
  Sex: Female

DRUGS (11)
  1. ETOPOSIDE [Suspect]
     Active Substance: ETOPOSIDE
     Indication: Acute myeloid leukaemia
     Dosage: UNK (3.3 MG/KG/DOSE DAILY DAYS 1 TO 5; INDUCTION 1)
     Route: 065
  2. ETOPOSIDE [Suspect]
     Active Substance: ETOPOSIDE
     Indication: Central nervous system leukaemia
     Dosage: UNK (INTENSIFICATION I: ETOPOSIDE 5 MG/KG/DOSE DAILY DAYS 1 TO 5)
     Route: 065
  3. CYTARABINE [Suspect]
     Active Substance: CYTARABINE
     Indication: Acute myeloid leukaemia
     Dosage: UNK UNK, EVERY 12 HRS (3.3 MG/KG/DOSE Q12H DAYS 1 TO 10; INDUCTION 1)
     Route: 065
  4. CYTARABINE [Suspect]
     Active Substance: CYTARABINE
     Indication: Central nervous system leukaemia
     Dosage: UNK UNK, EVERY 12 HRS (INDUCTION II: HIGH-DOSE CYTARABINE 33 MG/KG/DOSE Q12H DAYS 1 TO 4)
     Route: 065
  5. CYTARABINE [Suspect]
     Active Substance: CYTARABINE
     Dosage: UNK UNK, EVERY 12 HRS (INTENSIFICATION I: HIGH-DOSE CYTARABINE 33 MG/KG/DOSE Q12H DAYS 1 TO 5)
     Route: 065
  6. CYTARABINE [Suspect]
     Active Substance: CYTARABINE
     Dosage: 20 MILLIGRAM (ON DAY 1; INDUCTION 1 AND INDUCTION 2)
     Route: 037
  7. CYTARABINE [Suspect]
     Active Substance: CYTARABINE
     Dosage: 20 MILLIGRAM (INTENSIFICATION I: INTRATHECAL CYTARABINE 20 MG DAY 1)
     Route: 037
  8. CYTARABINE [Suspect]
     Active Substance: CYTARABINE
     Dosage: UNK (TWICE WEEKLY CYTARABINE FOR 2 WEEKS, WITH CLEARANCE OF BLASTS)
     Route: 037
  9. CYTARABINE [Suspect]
     Active Substance: CYTARABINE
     Dosage: 10 MILLIGRAM, (EVERY 2 WEEKS FOR A TOTAL OF 12 DOSES)
     Route: 037
  10. DAUNORUBICIN [Suspect]
     Active Substance: DAUNORUBICIN
     Indication: Acute myeloid leukaemia
     Dosage: UNK (1.7 MG/KG/DOSE DAYS 1, 3, 5; INDUCTION 1)
     Route: 065
  11. DAUNORUBICIN [Suspect]
     Active Substance: DAUNORUBICIN
     Indication: Central nervous system leukaemia

REACTIONS (1)
  - Pseudomonal sepsis [Unknown]
